FAERS Safety Report 6387334-9 (Version None)
Quarter: 2009Q3

REPORT INFORMATION
  Report Type: 
  Country: None (occurrence: None)
  Receive Date: 20090930
  Receipt Date: 20090914
  Transmission Date: 20100115
  Serious: Yes (Hospitalization)
  Sender: FDA-Public Use
  Company Number: 2009AL005011

PATIENT
  Age: 61 Year
  Sex: Female
  Weight: 81.6475 kg

DRUGS (76)
  1. DIGOXIN [Suspect]
     Indication: ATRIAL FIBRILLATION
     Dosage: 0.125MG, DAILY, PO
     Route: 048
     Dates: start: 19980707
  2. DIGOXIN [Suspect]
     Dosage: 0.25MG, DAILY, PO
     Route: 048
     Dates: start: 20020101, end: 20090703
  3. COUMADIN [Concomitant]
  4. EFFEXOR [Concomitant]
  5. PREVACID [Concomitant]
  6. ATENOLOL [Concomitant]
  7. ZOLOFT [Concomitant]
  8. ASPIRIN [Concomitant]
  9. TRICOR [Concomitant]
  10. CRESTOR [Concomitant]
  11. XANAX [Concomitant]
  12. TAMBOCOR [Concomitant]
  13. ATROVENT [Concomitant]
  14. FEXOPHENADINE HYDROCHLORIDE [Concomitant]
  15. NEXIUM [Concomitant]
  16. GLYBURIDE [Concomitant]
  17. IBUPROFEN [Concomitant]
  18. ALPRAZOLAM [Concomitant]
  19. ANUCORT [Concomitant]
  20. PROPO-N/APAP [Concomitant]
  21. ACETAMINOPHEN AND HYDROCODONE BITARTRATE [Concomitant]
  22. NAPROXEN [Concomitant]
  23. OXYCODONE HCL AND ACETAMINOPHEN [Concomitant]
  24. ACULAR [Concomitant]
  25. POLYMYXIN [Concomitant]
  26. FUROSEMIDE [Concomitant]
  27. PENLAC [Concomitant]
  28. NIASPAN [Concomitant]
  29. AMBIEN [Concomitant]
  30. ALTACE [Concomitant]
  31. OMEPRAZOLE [Concomitant]
  32. CHANTIX [Concomitant]
  33. NORVASC [Concomitant]
  34. PRAVASTATIN [Concomitant]
  35. SPIRONOLACTONE [Concomitant]
  36. ROPINIROLE [Concomitant]
  37. RAMIPRIL [Concomitant]
  38. DILTIAZEM [Concomitant]
  39. POTASSIUM CHLORIDE [Concomitant]
  40. LEVOTHYROXINE [Concomitant]
  41. MAGNESIUM OXIDE [Concomitant]
  42. MIRTAZAPINE [Concomitant]
  43. CALCIUM [Concomitant]
  44. PHENYTOIN [Concomitant]
  45. GLIMEPIRIDE [Concomitant]
  46. METFORMIN HYDROCHLORIDE [Concomitant]
  47. SYNTHROID [Concomitant]
  48. PRAVACHOL [Concomitant]
  49. DILANTIN [Concomitant]
  50. CARDIZEM [Concomitant]
  51. FUROSEMIDE [Concomitant]
  52. REQUIP [Concomitant]
  53. NOVOLOG [Concomitant]
  54. ZOLPIDEM [Concomitant]
  55. WARFARIN SODIUM [Concomitant]
  56. SERTRALINE HYDROCHLORIDE [Concomitant]
  57. LIPITOR [Concomitant]
  58. ENULOSE [Concomitant]
  59. MICRONASE [Concomitant]
  60. PRILOSEC [Concomitant]
  61. FLECAINIDE ACETATE [Concomitant]
  62. ELESTAT [Concomitant]
  63. ALLEGRA [Concomitant]
  64. HEMORRHOIDAL HC [Concomitant]
  65. HYDROCORTISONE ACETATE [Concomitant]
  66. DEXAMETHASONE/NEOMYCIN [Concomitant]
  67. IPRATROPIUM [Concomitant]
  68. VENLAFAXINE [Concomitant]
  69. LANSOPRAZOLE [Concomitant]
  70. ROSUVASTATIN [Concomitant]
  71. ESOMEPRAZOLE [Concomitant]
  72. FENOFIBRATE [Concomitant]
  73. CALAN [Concomitant]
  74. ARTHROTEC [Concomitant]
  75. AXID [Concomitant]
  76. NORVASC [Concomitant]

REACTIONS (12)
  - ASTHENIA [None]
  - ATRIAL FIBRILLATION [None]
  - CEREBRAL INFARCTION [None]
  - CEREBROVASCULAR ACCIDENT [None]
  - CHEST PAIN [None]
  - DYSPNOEA [None]
  - FALL [None]
  - FEELING ABNORMAL [None]
  - HYPERLIPIDAEMIA [None]
  - MENINGIOMA [None]
  - NAUSEA [None]
  - STRESS [None]
